FAERS Safety Report 21500878 (Version 3)
Quarter: 2022Q4

REPORT INFORMATION
  Report Type: Spontaneous
  Country: US (occurrence: US)
  Receive Date: 20221025
  Receipt Date: 20221125
  Transmission Date: 20230112
  Serious: No
  Sender: FDA-Public Use
  Company Number: US-ABBVIE-4159131

PATIENT
  Sex: Male

DRUGS (26)
  1. LUPRON DEPOT [Suspect]
     Active Substance: LEUPROLIDE ACETATE
     Indication: Product used for unknown indication
     Dosage: 22 MG
     Route: 065
  2. Timolol maleate (Timolol maleate) Solution, 0.5 %; [Concomitant]
     Indication: Product used for unknown indication
  3. ASPIRIN [Concomitant]
     Active Substance: ASPIRIN
     Indication: Product used for unknown indication
     Route: 048
  4. Furosemide (Furosemide) Tablet, 20 mg; Unknown [Concomitant]
     Indication: Product used for unknown indication
  5. LEVOTHYROXINE [Concomitant]
     Active Substance: LEVOTHYROXINE
     Indication: Product used for unknown indication
  6. Carvedilol (Carvedilol) Tablet, 12.5 mg [Concomitant]
     Indication: Product used for unknown indication
  7. Triamcinolon [Concomitant]
     Indication: Product used for unknown indication
  8. Aspirin (Aspirin) Tablet, 325 mg; [Concomitant]
     Indication: Product used for unknown indication
     Route: 048
  9. SIMVASTATIN [Concomitant]
     Active Substance: SIMVASTATIN
     Indication: Product used for unknown indication
  10. Nitroglycerin (Nitroglycerin) Formulation unknown, 0.4 mg [Concomitant]
     Indication: Product used for unknown indication
  11. FUROSEMIDE [Concomitant]
     Active Substance: FUROSEMIDE
     Indication: Product used for unknown indication
  12. Bactrim ds (Sulfamethoxazole, Trimethoprim) Tablet [Concomitant]
     Indication: Product used for unknown indication
  13. BACTRIM DS [Concomitant]
     Active Substance: SULFAMETHOXAZOLE\TRIMETHOPRIM
     Indication: Product used for unknown indication
  14. Allopurinol (Allopurinol) Tablet, 300 mg [Concomitant]
     Indication: Product used for unknown indication
     Route: 048
  15. ENALAPRIL MALEATE [Concomitant]
     Active Substance: ENALAPRIL MALEATE
     Indication: Product used for unknown indication
  16. ENZALUTAMIDE [Suspect]
     Active Substance: ENZALUTAMIDE
     Indication: Prostate cancer
     Route: 048
  17. Enalapril maleat (Enalapril maleat) Tablet, 20 mg [Concomitant]
     Indication: Product used for unknown indication
  18. ALLOPURINOL [Concomitant]
     Active Substance: ALLOPURINOL
     Indication: Product used for unknown indication
     Route: 048
  19. Potassium chloride (Potassium chloride) Formulation unknown, 8 mEq [Concomitant]
     Indication: Product used for unknown indication
  20. NITROGLYCERIN [Concomitant]
     Active Substance: NITROGLYCERIN
     Indication: Product used for unknown indication
  21. Levothyroxine (Levothyroxine) Tablet, 112 mcg [Concomitant]
     Indication: Product used for unknown indication
  22. CARVEDILOL [Concomitant]
     Active Substance: CARVEDILOL
     Indication: Product used for unknown indication
  23. Simvastatin (Simvastatin) Tablet, 20 mg; [Concomitant]
     Indication: Product used for unknown indication
  24. TIMOLOL MALEATE [Concomitant]
     Active Substance: TIMOLOL MALEATE
     Indication: Product used for unknown indication
  25. Triamcinolon (Triamcinolone) Cream, 0.5 %; [Concomitant]
     Indication: Product used for unknown indication
  26. POTASSIUM CHLORIDE [Concomitant]
     Active Substance: POTASSIUM CHLORIDE
     Indication: Product used for unknown indication

REACTIONS (2)
  - Fatigue [Not Recovered/Not Resolved]
  - Hypersomnia [Unknown]
